FAERS Safety Report 9105159 (Version 1)
Quarter: 2013Q1

REPORT INFORMATION
  Report Type: Spontaneous
  Country: US (occurrence: US)
  Receive Date: 20130220
  Receipt Date: 20130220
  Transmission Date: 20140127
  Serious: Yes (Other)
  Sender: FDA-Public Use
  Company Number: US-PFIZER INC-2013063434

PATIENT
  Age: 89 Year
  Sex: Female
  Weight: 68.03 kg

DRUGS (4)
  1. NORVASC [Suspect]
     Indication: HYPERTENSION
     Dosage: 10 MG, 1X/DAY
     Route: 048
  2. LIPITOR [Suspect]
     Indication: BLOOD CHOLESTEROL INCREASED
     Dosage: 20 MG, ONCE A DAY IN THE EVENING
     Route: 048
  3. MILK OF MAGNESIA [Concomitant]
     Indication: CONSTIPATION
     Dosage: UNK
  4. DULCOLAX [Concomitant]
     Indication: CONSTIPATION
     Dosage: UNK, EVERY FIVE DAYS

REACTIONS (1)
  - Ovarian cancer [Unknown]
